FAERS Safety Report 7846733-6 (Version None)
Quarter: 2011Q4

REPORT INFORMATION
  Report Type: 
  Country: None (occurrence: None)
  Receive Date: 20111025
  Receipt Date: 20111018
  Transmission Date: 20120403
  Serious: Yes (Other)
  Sender: FDA-Public Use
  Company Number: PHEH2009US16951

PATIENT
  Sex: Female

DRUGS (3)
  1. PROCRIT [Concomitant]
  2. AREDIA [Suspect]
  3. ZOMETA [Suspect]

REACTIONS (36)
  - OSTEOMYELITIS [None]
  - FACE OEDEMA [None]
  - COLONIC POLYP [None]
  - IRON DEFICIENCY ANAEMIA [None]
  - CELLULITIS [None]
  - HEPATITIS C [None]
  - BREAST CANCER [None]
  - PAIN [None]
  - BILIARY DILATATION [None]
  - OSTEONECROSIS OF JAW [None]
  - ERYTHEMA [None]
  - ECCHYMOSIS [None]
  - TOOTH LOSS [None]
  - CHOLELITHIASIS [None]
  - SEPSIS [None]
  - ANXIETY [None]
  - FISTULA [None]
  - HYPOTHYROIDISM [None]
  - DEEP VEIN THROMBOSIS [None]
  - MYELODYSPLASTIC SYNDROME [None]
  - RENAL FAILURE [None]
  - MULTIPLE MYELOMA [None]
  - INJURY [None]
  - TOOTH ABSCESS [None]
  - BASEDOW'S DISEASE [None]
  - GALLBLADDER ENLARGEMENT [None]
  - HYPERTENSION [None]
  - HEADACHE [None]
  - OEDEMA PERIPHERAL [None]
  - HERNIA PAIN [None]
  - DECREASED INTEREST [None]
  - EXPOSED BONE IN JAW [None]
  - DENTAL CARIES [None]
  - ASTHENIA [None]
  - MYALGIA [None]
  - MENTAL STATUS CHANGES [None]
